FAERS Safety Report 18331517 (Version 1)
Quarter: 2020Q3

REPORT INFORMATION
  Report Type: Spontaneous
  Country: CN (occurrence: CN)
  Receive Date: 20200930
  Receipt Date: 20200930
  Transmission Date: 20201103
  Serious: Yes (Hospitalization)
  Sender: FDA-Public Use
  Company Number: CN-ASTRAZENECA-2020SF23882

PATIENT
  Weight: 70 kg

DRUGS (3)
  1. PLATINUM [Concomitant]
     Active Substance: PLATINUM
     Indication: CHEMOTHERAPY
  2. PLATINUM [Concomitant]
     Active Substance: PLATINUM
     Indication: RADIOTHERAPY
  3. IMFINZI [Suspect]
     Active Substance: DURVALUMAB
     Indication: NON-SMALL CELL LUNG CANCER STAGE III
     Dosage: 1500.0MG EVERY CYCLE
     Route: 042
     Dates: end: 20200908

REACTIONS (1)
  - Myelosuppression [Recovering/Resolving]

NARRATIVE: CASE EVENT DATE: 20200717
